FAERS Safety Report 25324988 (Version 1)
Quarter: 2025Q2

REPORT INFORMATION
  Report Type: Spontaneous
  Country: US (occurrence: US)
  Receive Date: 20250516
  Receipt Date: 20250516
  Transmission Date: 20250717
  Serious: No
  Sender: EPIC PHARM
  Company Number: US-EPICPHARMA-US-2025EPCSPO00527

PATIENT
  Age: 48 Year
  Sex: Female

DRUGS (3)
  1. RIFAMPIN [Suspect]
     Active Substance: RIFAMPIN
     Indication: Mycobacterium avium complex infection
     Route: 065
     Dates: start: 202205, end: 202305
  2. ETHAMBUTOL HYDROCHLORIDE [Suspect]
     Active Substance: ETHAMBUTOL HYDROCHLORIDE
     Indication: Mycobacterium avium complex infection
     Route: 065
     Dates: start: 202205, end: 202305
  3. AZITHROMYCIN [Suspect]
     Active Substance: AZITHROMYCIN
     Indication: Mycobacterium avium complex infection
     Route: 065
     Dates: start: 202205, end: 202305

REACTIONS (4)
  - Drug resistance [Unknown]
  - Drug intolerance [Unknown]
  - Treatment failure [Unknown]
  - Product use in unapproved indication [Unknown]

NARRATIVE: CASE EVENT DATE: 20220501
